FAERS Safety Report 25055987 (Version 2)
Quarter: 2025Q3

REPORT INFORMATION
  Report Type: Spontaneous
  Country: US (occurrence: US)
  Receive Date: 20250309
  Receipt Date: 20250807
  Transmission Date: 20251021
  Serious: No
  Sender: SANOFI AVENTIS
  Company Number: US-SA-2025SA068727

PATIENT
  Age: 7 Year
  Sex: Female
  Weight: 29.94 kg

DRUGS (2)
  1. DUPIXENT [Suspect]
     Active Substance: DUPILUMAB
     Indication: Eczema
     Route: 058
     Dates: start: 202412, end: 202412
  2. DUPIXENT [Suspect]
     Active Substance: DUPILUMAB
     Dosage: 200 MG, QOW
     Route: 058

REACTIONS (7)
  - Scratch [Unknown]
  - Rash erythematous [Unknown]
  - Skin burning sensation [Unknown]
  - Condition aggravated [Unknown]
  - Pruritus [Unknown]
  - Insomnia [Unknown]
  - Off label use [Unknown]

NARRATIVE: CASE EVENT DATE: 20241201
